FAERS Safety Report 7300523-1 (Version None)
Quarter: 2011Q1

REPORT INFORMATION
  Report Type: 
  Country: None (occurrence: None)
  Receive Date: 20110217
  Receipt Date: 20110211
  Transmission Date: 20110831
  Serious: Yes (Congenital Anomaly)
  Sender: FDA-Public Use
  Company Number: US-AMGEN-USASP2011008754

PATIENT
  Sex: Male

DRUGS (1)
  1. NEUPOGEN [Suspect]
     Dosage: UNK
     Route: 064
     Dates: start: 19960101

REACTIONS (1)
  - TALIPES [None]
